FAERS Safety Report 6262322-1 (Version None)
Quarter: 2009Q3

REPORT INFORMATION
  Report Type: 
  Country: None (occurrence: None)
  Receive Date: 20090709
  Receipt Date: 20090625
  Transmission Date: 20100115
  Serious: Yes (Other)
  Sender: FDA-Public Use
  Company Number: PHEH2009US06971

PATIENT
  Age: 62 Year
  Sex: Female

DRUGS (9)
  1. FEMARA [Suspect]
     Indication: BREAST CANCER
     Dosage: 2.5 MG, QD
     Route: 048
  2. DIOVAN HCT [Concomitant]
  3. METFORMIN HCL [Concomitant]
  4. TRICOR [Concomitant]
  5. DOXYCYCLINE [Concomitant]
  6. ATENOLOL [Concomitant]
  7. SYNTHROID [Concomitant]
  8. LANTUS [Concomitant]
  9. NOVOLOG [Concomitant]

REACTIONS (2)
  - BLOOD GLUCOSE ABNORMAL [None]
  - DIABETES MELLITUS [None]
